FAERS Safety Report 6662238-2 (Version None)
Quarter: 2010Q1

REPORT INFORMATION
  Report Type: 
  Country: None (occurrence: None)
  Receive Date: 20100331
  Receipt Date: 20100305
  Transmission Date: 20100710
  Serious: Yes (Other)
  Sender: FDA-Public Use
  Company Number: DE-PFIZER INC-2010022508

PATIENT
  Age: 69 Year
  Sex: Male
  Weight: 74 kg

DRUGS (4)
  1. SORTIS [Suspect]
     Indication: HYPERLIPIDAEMIA
     Dosage: 40 MG, UNK
     Route: 048
     Dates: start: 20050101
  2. IBUPROFEN [Suspect]
     Indication: OSTEOARTHRITIS
     Dosage: 600 MG, UNK
     Route: 048
     Dates: start: 20100201
  3. CONCOR [Concomitant]
     Indication: CORONARY ARTERY DISEASE
     Dosage: 5 MG DAILY
     Route: 048
     Dates: start: 20050101
  4. ASPIRIN [Concomitant]
     Indication: CORONARY ARTERY DISEASE
     Dosage: 100 MG, UNK
     Route: 048
     Dates: start: 20050101

REACTIONS (4)
  - BLOOD AMYLASE INCREASED [None]
  - C-REACTIVE PROTEIN INCREASED [None]
  - LIPASE INCREASED [None]
  - POLYMYALGIA RHEUMATICA [None]
